FAERS Safety Report 6943324-6 (Version None)
Quarter: 2010Q3

REPORT INFORMATION
  Report Type: 
  Country: None (occurrence: None)
  Receive Date: 20100826
  Receipt Date: 20100817
  Transmission Date: 20110219
  Serious: Yes (Other)
  Sender: FDA-Public Use
  Company Number: US-PFIZER INC-2009288953

PATIENT
  Sex: Male

DRUGS (1)
  1. SUTENT [Suspect]
     Indication: METASTATIC RENAL CELL CARCINOMA
     Dosage: 50 MG, FOR 28 DAYS EVERY 42 DAYS
     Route: 048
     Dates: start: 20091005

REACTIONS (3)
  - CAROTID ARTERY STENOSIS [None]
  - DIABETES MELLITUS [None]
  - ORAL DISORDER [None]
